FAERS Safety Report 23316754 (Version 3)
Quarter: 2025Q4

REPORT INFORMATION
  Report Type: Spontaneous
  Country: EU (occurrence: EU)
  Receive Date: 20231219
  Receipt Date: 20251210
  Transmission Date: 20260117
  Serious: Yes (Hospitalization)
  Sender: SANDOZ
  Company Number: EU-KYOWAKIRIN-2016WRD-ADR000581AA

PATIENT
  Age: 68 Year
  Sex: Female
  Weight: 65 kg

DRUGS (19)
  1. CYCLOPHOSPHAMIDE [Suspect]
     Active Substance: CYCLOPHOSPHAMIDE
     Dosage: 750 MG/M2 FOR 21DAYS (MOST RECENT DOSE ON 04/NOV/2016 AND 14/AUG/2016)
     Route: 042
     Dates: start: 20160811
  2. CYCLOPHOSPHAMIDE [Suspect]
     Active Substance: CYCLOPHOSPHAMIDE
     Indication: Diffuse large B-cell lymphoma
     Dosage: 750 MG/M2, 21D (MOST RECENT DOSE ON 04/NOV/2016 AND 14/AUG/2016)
     Route: 042
     Dates: start: 20160811
  3. DOXORUBICIN HYDROCHLORIDE [Suspect]
     Active Substance: DOXORUBICIN HYDROCHLORIDE
     Dosage: 50 MG/M2, FOR 21DAYS (MOST RECENT DOSE 04/NOV/2016)
     Route: 042
  4. DOXORUBICIN HYDROCHLORIDE [Suspect]
     Active Substance: DOXORUBICIN HYDROCHLORIDE
     Indication: Diffuse large B-cell lymphoma
     Dosage: 50 MG/M2, 21D (MOST RECENT DOSE 04/NOV/2016)
     Route: 042
     Dates: start: 20160811
  5. LENALIDOMIDE [Suspect]
     Active Substance: LENALIDOMIDE
     Indication: Diffuse large B-cell lymphoma
     Dosage: MOST RECENT DOSE ON 14/AUG/2016
     Route: 048
     Dates: start: 20160811
  6. PREDNISONE [Suspect]
     Active Substance: PREDNISONE
     Indication: Diffuse large B-cell lymphoma
     Dosage: 100 MG (MOST RECENT DOSE ON 04 NOV 2016)
     Route: 048
     Dates: start: 20160811
  7. RITUXIMAB [Suspect]
     Active Substance: RITUXIMAB
     Indication: Diffuse large B-cell lymphoma
     Dosage: 375 MG/M2
     Route: 042
     Dates: start: 20161104
  8. RITUXIMAB [Suspect]
     Active Substance: RITUXIMAB
     Dosage: 375 MG/M2
     Route: 042
     Dates: start: 20160810
  9. VINCRISTINE [Suspect]
     Active Substance: VINCRISTINE
     Indication: Diffuse large B-cell lymphoma
     Dosage: 1.4 MG/M2 (MOST RECENT DOSE ON 04/NOV/2016) INFUSION
     Route: 042
     Dates: start: 20160812
  10. BACTRIM [Concomitant]
     Active Substance: SULFAMETHOXAZOLE\TRIMETHOPRIM
     Indication: Product used for unknown indication
     Dosage: UNK
     Route: 065
     Dates: start: 20160817
  11. DIFLUCAN [Concomitant]
     Active Substance: FLUCONAZOLE
     Indication: Mucosal inflammation
     Dosage: 200 MG, QD
     Route: 065
     Dates: start: 20161014
  12. HEPARIN [Concomitant]
     Active Substance: HEPARIN SODIUM
     Indication: Deep vein thrombosis
     Dosage: 16000 IU, QD
     Route: 065
     Dates: start: 20161022
  13. HEPARIN [Concomitant]
     Active Substance: HEPARIN SODIUM
     Dosage: 16000 IU, QD
     Route: 065
     Dates: start: 20161103
  14. HEPARIN [Concomitant]
     Active Substance: HEPARIN SODIUM
     Dosage: UNK
     Route: 065
     Dates: start: 20161105
  15. HEPARIN [Concomitant]
     Active Substance: HEPARIN SODIUM
     Dosage: UNK
     Route: 065
     Dates: start: 20161117
  16. LORMETAZEPAM [Concomitant]
     Active Substance: LORMETAZEPAM
     Indication: Insomnia
     Dosage: 10 DRP, QD
     Route: 065
     Dates: start: 20160729
  17. FILGRASTIM [Concomitant]
     Active Substance: FILGRASTIM
     Indication: Prophylaxis
     Dosage: 30 MUI
     Route: 065
     Dates: start: 20161106
  18. PANTOPRAZOLE [Concomitant]
     Active Substance: PANTOPRAZOLE
     Indication: Gastritis prophylaxis
     Dosage: 20 MG, QD
     Route: 065
     Dates: start: 20160729
  19. PIOGLITAZONE [Concomitant]
     Active Substance: PIOGLITAZONE
     Indication: Diabetes mellitus
     Dosage: 15 MG, QD
     Route: 065
     Dates: start: 20160729

REACTIONS (4)
  - Hypotension [Recovered/Resolved]
  - Anaemia [Recovered/Resolved]
  - Platelet count decreased [Recovered/Resolved]
  - Syncope [Recovered/Resolved]

NARRATIVE: CASE EVENT DATE: 20161115
